FAERS Safety Report 13354432 (Version 1)
Quarter: 2017Q1

REPORT INFORMATION
  Report Type: Spontaneous
  Country: US (occurrence: US)
  Receive Date: 20170321
  Receipt Date: 20170321
  Transmission Date: 20170429
  Serious: Yes (Hospitalization, Other)
  Sender: FDA-Public Use
  Company Number: US-AUROBINDO-AUR-APL-2017-31091

PATIENT
  Sex: Female

DRUGS (2)
  1. ASPIRIN                            /00002701/ [Concomitant]
     Active Substance: ASPIRIN
     Indication: PRODUCT USED FOR UNKNOWN INDICATION
     Dosage: 325 MG, UNK
     Route: 065
  2. CLARITHROMYCIN TABLETS USP 500 MG [Suspect]
     Active Substance: CLARITHROMYCIN
     Indication: INFECTION
     Dosage: 500 MG, UNK
     Route: 048
     Dates: start: 20170228, end: 20170303

REACTIONS (3)
  - Urticaria [Recovered/Resolved]
  - Lip swelling [Recovered/Resolved]
  - Rash [Recovered/Resolved]

NARRATIVE: CASE EVENT DATE: 20170304
